FAERS Safety Report 16291268 (Version 1)
Quarter: 2019Q2

REPORT INFORMATION
  Report Type: Spontaneous
  Country: US (occurrence: US)
  Receive Date: 20190509
  Receipt Date: 20190509
  Transmission Date: 20190711
  Serious: No
  Sender: FDA-Public Use
  Company Number: US-PFIZER INC-2019193145

PATIENT
  Age: 45 Year
  Sex: Female

DRUGS (2)
  1. SOMAVERT [Suspect]
     Active Substance: PEGVISOMANT
     Indication: INSULIN-LIKE GROWTH FACTOR INCREASED
     Dosage: 10 MG, DAILY
     Route: 058
     Dates: start: 201707
  2. LANREOTIDE [Concomitant]
     Active Substance: LANREOTIDE
     Dosage: 90 MG, MONTHLY
     Route: 058
     Dates: start: 201707

REACTIONS (1)
  - Drug ineffective [Unknown]

NARRATIVE: CASE EVENT DATE: 2017
